FAERS Safety Report 8835077 (Version 1)
Quarter: 2012Q4

REPORT INFORMATION
  Report Type: 
  Country: US (occurrence: US)
  Receive Date: 20121010
  Receipt Date: 20121010
  Transmission Date: 20130627
  Serious: No
  Sender: FDA-Public Use
  Company Number: US-TEVA-363497USA

PATIENT
  Sex: Female
  Weight: 54.03 kg

DRUGS (1)
  1. NUVIGIL [Suspect]
     Indication: CIRCADIAN RHYTHM SLEEP DISORDER
     Dosage: 250 Milligram Daily;
     Route: 048
     Dates: start: 201205

REACTIONS (6)
  - Gingival erosion [Not Recovered/Not Resolved]
  - Oral fungal infection [Not Recovered/Not Resolved]
  - Infection parasitic [Not Recovered/Not Resolved]
  - Stomatitis [Recovered/Resolved]
  - Oedema mouth [Not Recovered/Not Resolved]
  - Oral pain [Not Recovered/Not Resolved]
